FAERS Safety Report 13179728 (Version 2)
Quarter: 2017Q2

REPORT INFORMATION
  Report Type: Spontaneous
  Country: US (occurrence: US)
  Receive Date: 20170202
  Receipt Date: 20170413
  Transmission Date: 20170830
  Serious: Yes (Hospitalization, Other)
  Sender: FDA-Public Use
  Company Number: US-NOVOPROD-529203

PATIENT
  Age: 64 Year
  Sex: Female
  Weight: 114.29 kg

DRUGS (10)
  1. ALDACTONE [Concomitant]
     Active Substance: SPIRONOLACTONE
     Indication: PRODUCT USED FOR UNKNOWN INDICATION
     Dosage: 25 MG, QD
     Route: 048
  2. ESTRACE [Concomitant]
     Active Substance: ESTRADIOL
     Indication: PRODUCT USED FOR UNKNOWN INDICATION
     Dosage: 0.5 GRAMS VAGINALLY DAILY FOR 2 WEEKS THEN 2 TO 3 TIMES A WEEK
     Route: 067
  3. LEVEMIR [Suspect]
     Active Substance: INSULIN DETEMIR
     Indication: TYPE 2 DIABETES MELLITUS
     Dosage: 36 U, QD, AT BEDTIME
     Route: 058
     Dates: start: 2007
  4. ALPRAZOLAM. [Concomitant]
     Active Substance: ALPRAZOLAM
     Indication: PRODUCT USED FOR UNKNOWN INDICATION
     Dosage: 0.5 MG, TID, AS NEEDED
     Route: 048
  5. COMBIVENT RESPIMAT [Concomitant]
     Active Substance: ALBUTEROL SULFATE\IPRATROPIUM BROMIDE
     Indication: DYSPNOEA
     Dosage: 1 INHALATION EVERY 4 TO 6 HOURS AS NEEDED FOR SHORTNESS OF BREATH
     Route: 055
  6. LEVOTHYROXINE. [Concomitant]
     Active Substance: LEVOTHYROXINE
     Indication: PRODUCT USED FOR UNKNOWN INDICATION
     Dosage: 50 ?G, QD, IN THE MORNING ON AN EMPTY STOMACH
     Route: 048
  7. ASPIRIN                            /00002701/ [Concomitant]
     Active Substance: ASPIRIN
     Indication: PRODUCT USED FOR UNKNOWN INDICATION
     Dosage: 81 MG, QD
     Route: 048
  8. NYSTATIN. [Concomitant]
     Active Substance: NYSTATIN
     Indication: PRODUCT USED FOR UNKNOWN INDICATION
     Dosage: APPLY 2 TO 3 TIMES A DAY
     Route: 061
  9. NOVOLOG [Concomitant]
     Active Substance: INSULIN ASPART
     Dosage: HIGHER DOSE SCALE: INJECT 8 UNITS FOR 90-150 ADDING 2 UNITS/50MG BEFORE MEALS 3 TO 4 TIMES A DAY
  10. NOVOLOG [Concomitant]
     Active Substance: INSULIN ASPART
     Indication: TYPE 2 DIABETES MELLITUS
     Dosage: 5 U, TID, BEFORE MEALS FOR 150-200 ADDING 5UNITS/50MG/DL THERAFTER, USING UP TO 60 UNITS PER DAY
     Route: 058

REACTIONS (4)
  - Sepsis [Unknown]
  - Urinary tract infection [Not Recovered/Not Resolved]
  - Altered state of consciousness [Recovered/Resolved]
  - Vomiting [Unknown]

NARRATIVE: CASE EVENT DATE: 20150707
